FAERS Safety Report 9961302 (Version 1)
Quarter: 2014Q1

REPORT INFORMATION
  Report Type: Spontaneous
  Country: US (occurrence: None)
  Receive Date: 20140304
  Receipt Date: 20140304
  Transmission Date: 20141002
  Serious: Yes (Hospitalization)
  Sender: FDA-Public Use
  Company Number: None

PATIENT
  Age: 50 Year
  Sex: Male
  Weight: 73.5 kg

DRUGS (1)
  1. POMALIDOMIDE [Suspect]
     Indication: SICKLE CELL ANAEMIA
     Route: 048
     Dates: start: 20120424

REACTIONS (4)
  - Arthralgia [None]
  - Pyrexia [None]
  - Disease progression [None]
  - Sickle cell anaemia with crisis [None]
